FAERS Safety Report 13499834 (Version 3)
Quarter: 2017Q2

REPORT INFORMATION
  Report Type: Spontaneous
  Country: US (occurrence: US)
  Receive Date: 20170501
  Receipt Date: 20170522
  Transmission Date: 20170830
  Serious: No
  Sender: FDA-Public Use
  Company Number: US-GILEAD-2017-0270166

PATIENT
  Age: 34 Year
  Sex: Male
  Weight: 103.86 kg

DRUGS (7)
  1. TRUVADA [Suspect]
     Active Substance: EMTRICITABINE\TENOFOVIR DISOPROXIL FUMARATE
     Indication: PROPHYLAXIS AGAINST HIV INFECTION
     Dosage: 200/300, UNK
     Route: 048
     Dates: start: 20170423, end: 20170425
  2. ALBUTEROL                          /00139501/ [Concomitant]
     Active Substance: ALBUTEROL
  3. CETIRIZINE [Concomitant]
     Active Substance: CETIRIZINE HYDROCHLORIDE
  4. EPIPEN [Concomitant]
     Active Substance: EPINEPHRINE
  5. IPRATROPIUM [Concomitant]
     Active Substance: IPRATROPIUM
  6. TESTOSTERONE. [Concomitant]
     Active Substance: TESTOSTERONE
  7. FLUTICASONE. [Concomitant]
     Active Substance: FLUTICASONE

REACTIONS (1)
  - Urticaria [Recovered/Resolved]

NARRATIVE: CASE EVENT DATE: 20170423
